FAERS Safety Report 13640246 (Version 2)
Quarter: 2017Q3

REPORT INFORMATION
  Report Type: Report from Study
  Country: None (occurrence: BE)
  Receive Date: 20170610
  Receipt Date: 20170710
  Transmission Date: 20171127
  Serious: Yes (Hospitalization)
  Sender: FDA-Public Use
  Company Number: BE-ABBVIE-17K-013-2002013-00

PATIENT
  Sex: Male

DRUGS (4)
  1. DUODOPA [Suspect]
     Active Substance: CARBIDOPA\LEVODOPA
     Indication: PARKINSON^S DISEASE
     Dosage: MD= 6 ML; CD= 1.8 ML/H DURING 16 HRS; EDA= 1.5 ML
     Route: 050
     Dates: start: 20141006, end: 20141009
  2. DUODOPA [Suspect]
     Active Substance: CARBIDOPA\LEVODOPA
     Dosage: MD= 5 ML; CD= 1.8 ML/H DURING 16 HRS; EDA= 1.3 ML
     Route: 050
     Dates: start: 20170403, end: 20170704
  3. DUODOPA [Suspect]
     Active Substance: CARBIDOPA\LEVODOPA
     Dosage: MD= 5 ML; CD= 1.4 ML/H DURING 16 HRS; EDA= 1.3 ML
     Route: 050
     Dates: start: 20170704
  4. DUODOPA [Suspect]
     Active Substance: CARBIDOPA\LEVODOPA
     Dosage: DOSES CONTINUOUSLY MONITORED AND ADAPTED
     Route: 050
     Dates: start: 20141009, end: 20170403

REACTIONS (2)
  - Memory impairment [Not Recovered/Not Resolved]
  - On and off phenomenon [Unknown]
